FAERS Safety Report 20156422 (Version 1)
Quarter: 2021Q4

REPORT INFORMATION
  Report Type: Spontaneous
  Country: US (occurrence: US)
  Receive Date: 20211207
  Receipt Date: 20211207
  Transmission Date: 20220303
  Serious: No
  Sender: FDA-Public Use
  Company Number: US-MYLANLABS-2021M1081576

PATIENT
  Sex: Female

DRUGS (1)
  1. CLOBETASOL PROPIONATE [Suspect]
     Active Substance: CLOBETASOL PROPIONATE
     Indication: Alopecia
     Dosage: 0.05 PERCENT, QD
     Route: 061
     Dates: end: 20211103

REACTIONS (2)
  - Product physical issue [Not Recovered/Not Resolved]
  - Off label use [Unknown]
